FAERS Safety Report 24724497 (Version 1)
Quarter: 2024Q4

REPORT INFORMATION
  Report Type: Spontaneous
  Country: FR (occurrence: FR)
  Receive Date: 20241212
  Receipt Date: 20241212
  Transmission Date: 20250115
  Serious: Yes (Other)
  Sender: ALEXION PHARMACEUTICALS
  Company Number: FR-ASTRAZENECA-202412GLO005526FR

PATIENT
  Age: 24 Year

DRUGS (1)
  1. QUETIAPINE FUMARATE [Suspect]
     Active Substance: QUETIAPINE FUMARATE
     Indication: Suicide attempt
     Dosage: 60 TABLETS OF 400 MG QUETIAPINE

REACTIONS (7)
  - Agitation [Recovered/Resolved]
  - Extrapyramidal disorder [Recovered/Resolved]
  - Suicide attempt [Unknown]
  - Coma [Unknown]
  - Seizure [Unknown]
  - Somnolence [Unknown]
  - Intentional overdose [Unknown]
